APPROVED DRUG PRODUCT: ERYTHROMYCIN ESTOLATE
Active Ingredient: ERYTHROMYCIN ESTOLATE
Strength: EQ 125MG BASE
Dosage Form/Route: CAPSULE;ORAL
Application: A062162 | Product #001
Applicant: BARR LABORATORIES INC
Approved: Approved Prior to Jan 1, 1982 | RLD: No | RS: No | Type: DISCN